FAERS Safety Report 8496402-7 (Version None)
Quarter: 2012Q2

REPORT INFORMATION
  Report Type: 
  Country: None (occurrence: None)
  Receive Date: 20120405
  Receipt Date: 20091030
  Transmission Date: 20120825
  Serious: Yes (Other)
  Sender: FDA-Public Use
  Company Number: PHEH2009US14800

PATIENT
  Age: 59 Year
  Sex: Female

DRUGS (4)
  1. ESTRADIOL [Concomitant]
  2. MEDROXYPROGESTERONE [Concomitant]
  3. SYNTHROID (LEVOTHYROXIUM SODIUM) [Concomitant]
  4. RECLAST (ZOLEDRONATE) SOLUTION FOR INJECTION [Suspect]
     Dosage: UNK

REACTIONS (2)
  - WEIGHT DECREASED [None]
  - DIARRHOEA [None]
